FAERS Safety Report 7078087-X (Version None)
Quarter: 2010Q4

REPORT INFORMATION
  Report Type: 
  Country: None (occurrence: None)
  Receive Date: 20101102
  Receipt Date: 20101021
  Transmission Date: 20110411
  Serious: No
  Sender: FDA-Public Use
  Company Number: US-BIOGENIDEC-2010BI037396

PATIENT
  Age: 51 Year
  Sex: Female

DRUGS (1)
  1. TYSABRI [Suspect]
     Indication: NEUROMYELITIS OPTICA
     Route: 042
     Dates: start: 20100903

REACTIONS (2)
  - BAND SENSATION [None]
  - DYSPNOEA [None]
